FAERS Safety Report 9722025 (Version 2)
Quarter: 2013Q4

REPORT INFORMATION
  Report Type: Report from Study
  Country: SK (occurrence: SK)
  Receive Date: 20131202
  Receipt Date: 20131211
  Transmission Date: 20140711
  Serious: Yes (Hospitalization)
  Sender: FDA-Public Use
  Company Number: SK-ROCHE-1311834

PATIENT
  Age: 74 Year
  Sex: Female
  Weight: 74.09 kg

DRUGS (6)
  1. RANIBIZUMAB [Suspect]
     Indication: AGE-RELATED MACULAR DEGENERATION
     Route: 050
     Dates: start: 20130730
  2. EUPHYLLIN CR N [Concomitant]
     Route: 065
  3. BISOMERCK PLUS [Concomitant]
     Route: 065
  4. HYDROCHLOROTHIAZIDE [Concomitant]
     Route: 065
  5. MILURIT [Concomitant]
  6. PROTEVASC SR [Concomitant]

REACTIONS (3)
  - Basal ganglia haemorrhage [Unknown]
  - Psychotic disorder [Recovered/Resolved]
  - Hallucination, visual [Recovered/Resolved]
